FAERS Safety Report 26009822 (Version 1)
Quarter: 2025Q4

REPORT INFORMATION
  Report Type: Report from Study
  Country: CN (occurrence: CN)
  Receive Date: 20251107
  Receipt Date: 20251107
  Transmission Date: 20260117
  Serious: Yes (Other)
  Sender: ROCHE
  Company Number: CN-ROCHE-3573243

PATIENT
  Age: 67 Year
  Sex: Male
  Weight: 78 kg

DRUGS (59)
  1. POLATUZUMAB VEDOTIN [Suspect]
     Active Substance: POLATUZUMAB VEDOTIN
     Indication: Diffuse large B-cell lymphoma
     Dosage: THE DATE OF MOST RECENT DOSE OF POLATUZUMAB WAS 120MG, ONCE PER DAY, INTRAVENOUS DRIP ON 03 MAR 2024
     Route: 042
     Dates: start: 20240120, end: 20240120
  2. POLATUZUMAB VEDOTIN [Suspect]
     Active Substance: POLATUZUMAB VEDOTIN
     Dosage: THE DATE OF MOST RECENT DOSE OF POLATUZUMAB WAS 120MG, ONCE PER DAY, INTRAVENOUS DRIP ON 03 MAR 2024
     Route: 042
     Dates: start: 20240209, end: 20240209
  3. POLATUZUMAB VEDOTIN [Suspect]
     Active Substance: POLATUZUMAB VEDOTIN
     Dosage: THE DATE OF MOST RECENT DOSE OF POLATUZUMAB WAS 120MG, ONCE PER DAY, INTRAVENOUS DRIP ON 03 MAR 2024
     Route: 042
     Dates: start: 20240303, end: 20240303
  4. RITUXIMAB [Suspect]
     Active Substance: RITUXIMAB
     Indication: Diffuse large B-cell lymphoma
     Route: 042
     Dates: start: 20240119, end: 20240119
  5. RITUXIMAB [Suspect]
     Active Substance: RITUXIMAB
     Route: 042
     Dates: start: 20240208, end: 20240208
  6. RITUXIMAB [Suspect]
     Active Substance: RITUXIMAB
     Route: 065
     Dates: start: 20240303, end: 20240303
  7. RITUXIMAB [Suspect]
     Active Substance: RITUXIMAB
     Route: 065
     Dates: start: 20240403, end: 20240403
  8. RITUXIMAB [Suspect]
     Active Substance: RITUXIMAB
     Route: 042
     Dates: start: 20240522, end: 20240522
  9. DOXORUBICIN [Suspect]
     Active Substance: DOXORUBICIN
     Indication: Diffuse large B-cell lymphoma
     Route: 065
  10. DOXORUBICIN [Suspect]
     Active Substance: DOXORUBICIN
     Route: 042
     Dates: start: 20240209, end: 20240209
  11. DOXORUBICIN [Suspect]
     Active Substance: DOXORUBICIN
     Route: 042
     Dates: start: 20240303, end: 20240303
  12. CYCLOPHOSPHAMIDE [Suspect]
     Active Substance: CYCLOPHOSPHAMIDE
     Indication: Diffuse large B-cell lymphoma
     Route: 065
  13. CYCLOPHOSPHAMIDE [Suspect]
     Active Substance: CYCLOPHOSPHAMIDE
     Route: 042
     Dates: start: 20240209, end: 20240209
  14. CYCLOPHOSPHAMIDE [Suspect]
     Active Substance: CYCLOPHOSPHAMIDE
     Route: 042
     Dates: start: 20240303, end: 20240303
  15. PREDNISONE [Suspect]
     Active Substance: PREDNISONE
     Indication: Diffuse large B-cell lymphoma
     Route: 048
     Dates: start: 20240209, end: 20240213
  16. PREDNISONE [Suspect]
     Active Substance: PREDNISONE
     Route: 065
  17. PREDNISONE [Suspect]
     Active Substance: PREDNISONE
     Route: 048
     Dates: start: 20240303, end: 20240303
  18. TUCIDINOSTAT [Suspect]
     Active Substance: TUCIDINOSTAT
     Indication: Diffuse large B-cell lymphoma
     Route: 065
  19. TUCIDINOSTAT [Suspect]
     Active Substance: TUCIDINOSTAT
     Route: 048
     Dates: start: 20240209, end: 20240302
  20. TUCIDINOSTAT [Suspect]
     Active Substance: TUCIDINOSTAT
     Route: 048
     Dates: start: 20240303, end: 20240303
  21. LENALIDOMIDE [Suspect]
     Active Substance: LENALIDOMIDE
     Indication: Diffuse large B-cell lymphoma
     Route: 048
     Dates: start: 20240120, end: 20240129
  22. ZANUBRUTINIB [Suspect]
     Active Substance: ZANUBRUTINIB
     Indication: Diffuse large B-cell lymphoma
     Route: 048
     Dates: start: 20240120, end: 20240208
  23. AMLODIPINE [Concomitant]
     Active Substance: AMLODIPINE BESYLATE
     Dosage: DOSE: 1 TABLET
     Route: 048
     Dates: start: 20240209
  24. METHYLPREDNISOLONE SODIUM SUCCINATE [Concomitant]
     Active Substance: METHYLPREDNISOLONE SODIUM SUCCINATE
     Route: 042
     Dates: start: 20240119, end: 20240119
  25. METHYLPREDNISOLONE SODIUM SUCCINATE [Concomitant]
     Active Substance: METHYLPREDNISOLONE SODIUM SUCCINATE
     Route: 042
     Dates: start: 20240209, end: 20240209
  26. METHYLPREDNISOLONE SODIUM SUCCINATE [Concomitant]
     Active Substance: METHYLPREDNISOLONE SODIUM SUCCINATE
     Route: 042
     Dates: start: 20240303, end: 20240303
  27. METHYLPREDNISOLONE SODIUM SUCCINATE [Concomitant]
     Active Substance: METHYLPREDNISOLONE SODIUM SUCCINATE
     Route: 042
     Dates: start: 20240403, end: 20240404
  28. omeprazole enteric-coated capsules [Concomitant]
     Route: 048
     Dates: start: 20240119, end: 20240119
  29. omeprazole enteric-coated capsules [Concomitant]
     Route: 048
     Dates: start: 20240209, end: 20240214
  30. omeprazole enteric-coated capsules [Concomitant]
     Route: 048
     Dates: start: 20240302, end: 20240308
  31. omeprazole enteric-coated capsules [Concomitant]
     Route: 048
     Dates: start: 20240304, end: 20240308
  32. omeprazole enteric-coated capsules [Concomitant]
     Route: 048
     Dates: start: 20240404, end: 20240417
  33. leucogen tablet [Concomitant]
     Route: 048
     Dates: start: 20240119
  34. PROMETHAZINE [Concomitant]
     Active Substance: PROMETHAZINE HYDROCHLORIDE
     Route: 030
     Dates: start: 20240120, end: 20240121
  35. PROMETHAZINE [Concomitant]
     Active Substance: PROMETHAZINE HYDROCHLORIDE
     Route: 030
     Dates: start: 20240119, end: 20240119
  36. PROMETHAZINE [Concomitant]
     Active Substance: PROMETHAZINE HYDROCHLORIDE
     Route: 030
     Dates: start: 20240209, end: 20240210
  37. PROMETHAZINE [Concomitant]
     Active Substance: PROMETHAZINE HYDROCHLORIDE
     Route: 030
     Dates: start: 20240303, end: 20240304
  38. PROMETHAZINE [Concomitant]
     Active Substance: PROMETHAZINE HYDROCHLORIDE
     Route: 030
     Dates: start: 20240403, end: 20240404
  39. LIDOCAINE HYDROCHLORIDE [Concomitant]
     Active Substance: LIDOCAINE HYDROCHLORIDE
     Route: 058
     Dates: start: 20240118, end: 20240119
  40. LIDOCAINE HYDROCHLORIDE [Concomitant]
     Active Substance: LIDOCAINE HYDROCHLORIDE
     Route: 058
     Dates: start: 20240208, end: 20240208
  41. Cefaclor extended-release tablets [Concomitant]
     Route: 048
     Dates: start: 20240121
  42. ENTECAVIR [Concomitant]
     Active Substance: ENTECAVIR
     Route: 048
     Dates: start: 20240121
  43. SULFAMETHOXAZOLE [Concomitant]
     Active Substance: SULFAMETHOXAZOLE
     Route: 048
     Dates: start: 20240121
  44. chlortetracycline hydrochloride eye ointment [Concomitant]
     Dates: start: 20240120, end: 20240120
  45. compound paracetamol tablet [Concomitant]
     Route: 048
     Dates: start: 20240209, end: 20240210
  46. compound paracetamol tablet [Concomitant]
     Route: 048
     Dates: start: 20240303, end: 20240304
  47. compound paracetamol tablet [Concomitant]
     Route: 048
     Dates: start: 20240403, end: 20240404
  48. VITAMIN B6 [Concomitant]
     Active Substance: PYRIDOXINE HYDROCHLORIDE
     Route: 042
     Dates: start: 20240209, end: 20240210
  49. VITAMIN B6 [Concomitant]
     Active Substance: PYRIDOXINE HYDROCHLORIDE
     Route: 042
     Dates: start: 20240303, end: 20240304
  50. ACETYLCYSTEINE [Concomitant]
     Active Substance: ACETYLCYSTEINE
     Route: 048
     Dates: start: 20240208, end: 20240208
  51. ACETYLCYSTEINE [Concomitant]
     Active Substance: ACETYLCYSTEINE
     Route: 048
     Dates: start: 20240302, end: 20240302
  52. ACETYLCYSTEINE [Concomitant]
     Active Substance: ACETYLCYSTEINE
     Route: 048
     Dates: start: 20240403, end: 20240403
  53. prednisone acetate tablet [Concomitant]
     Route: 048
     Dates: start: 20240302, end: 20240302
  54. prednisone acetate tablet [Concomitant]
     Route: 048
     Dates: start: 20240119, end: 20240119
  55. prednisone acetate tablet [Concomitant]
     Route: 048
     Dates: start: 20240208, end: 20240208
  56. HEPARIN SODIUM [Concomitant]
     Active Substance: HEPARIN SODIUM
     Route: 042
     Dates: start: 20240304, end: 20240304
  57. BISOPROLOL [Concomitant]
     Active Substance: BISOPROLOL
     Dosage: MEDICATION DOSE: 0.5 TABLET
     Route: 048
     Dates: start: 20230523
  58. METHYLCOBALAMIN [Concomitant]
     Active Substance: METHYLCOBALAMIN
  59. ACYCLOVIR SODIUM [Concomitant]
     Active Substance: ACYCLOVIR SODIUM

REACTIONS (6)
  - Anaemia [Recovered/Resolved]
  - Hypomagnesaemia [Recovered/Resolved]
  - Lymphocyte count decreased [Not Recovered/Not Resolved]
  - Hypomagnesaemia [Recovered/Resolved]
  - Dermatitis infected [Not Recovered/Not Resolved]
  - Deep vein thrombosis [Not Recovered/Not Resolved]

NARRATIVE: CASE EVENT DATE: 20240208
